FAERS Safety Report 19648947 (Version 9)
Quarter: 2021Q4

REPORT INFORMATION
  Report Type: Spontaneous
  Country: CA (occurrence: CA)
  Receive Date: 20210803
  Receipt Date: 20211124
  Transmission Date: 20220303
  Serious: Yes (Hospitalization, Other)
  Sender: FDA-Public Use
  Company Number: CA-CELLTRION INC.-2021CA006095

PATIENT

DRUGS (8)
  1. INFLECTRA [Suspect]
     Active Substance: INFLIXIMAB-DYYB
     Indication: Crohn^s disease
     Dosage: 1300 MG, EVERY 4 WEEKS
     Route: 042
     Dates: start: 20200707
  2. INFLECTRA [Suspect]
     Active Substance: INFLIXIMAB-DYYB
     Dosage: 1300 MG EVERY 4 WEEKS
     Route: 042
     Dates: start: 20210302
  3. INFLECTRA [Suspect]
     Active Substance: INFLIXIMAB-DYYB
     Dosage: 1300 MG EVERY 4 WEEKS
     Route: 042
     Dates: start: 20210416, end: 20210416
  4. INFLECTRA [Suspect]
     Active Substance: INFLIXIMAB-DYYB
     Dosage: 1300 MG EVERY 4 WEEKS
     Route: 042
     Dates: start: 20210522, end: 20210522
  5. INFLECTRA [Suspect]
     Active Substance: INFLIXIMAB-DYYB
     Dosage: 1300 MG EVERY 4 WEEKS
     Route: 042
     Dates: start: 20210522, end: 20210522
  6. INFLECTRA [Suspect]
     Active Substance: INFLIXIMAB-DYYB
     Dosage: 1300 MG EVERY 4 WEEKS
     Route: 042
     Dates: start: 20210619
  7. INFLECTRA [Suspect]
     Active Substance: INFLIXIMAB-DYYB
     Dosage: 1300 MG EVERY 4 WEEKS
     Route: 042
     Dates: start: 20210717
  8. INFLECTRA [Suspect]
     Active Substance: INFLIXIMAB-DYYB
     Dosage: 1300 MG, Q 0,2,6 WEEKS, THEN EVERY 4 WEEKS. REINDUCTION
     Route: 042
     Dates: start: 20211004

REACTIONS (19)
  - Sepsis [Recovering/Resolving]
  - Localised infection [Recovering/Resolving]
  - Fistula [Not Recovered/Not Resolved]
  - Weight decreased [Unknown]
  - Pyoderma gangrenosum [Unknown]
  - Blood pressure increased [Not Recovered/Not Resolved]
  - Infection parasitic [Unknown]
  - Condition aggravated [Not Recovered/Not Resolved]
  - Erythema nodosum [Unknown]
  - Arthralgia [Unknown]
  - Insomnia [Unknown]
  - Pain [Unknown]
  - Gait inability [Unknown]
  - Off label use [Unknown]
  - Intentional product use issue [Unknown]
  - Inappropriate schedule of product administration [Unknown]
  - Off label use [Unknown]
  - Off label use [Unknown]
  - Product dose omission issue [Unknown]

NARRATIVE: CASE EVENT DATE: 20200707
